FAERS Safety Report 7668105-X (Version None)
Quarter: 2011Q3

REPORT INFORMATION
  Report Type: 
  Country: None (occurrence: None)
  Receive Date: 20110808
  Receipt Date: 20110729
  Transmission Date: 20111222
  Serious: Yes (Death, Life-Threatening)
  Sender: FDA-Public Use
  Company Number: RO-CUBIST-2011S1000232

PATIENT
  Age: 43 Year
  Sex: Female

DRUGS (1)
  1. CUBICIN [Suspect]
     Indication: SKIN INFECTION
     Route: 042

REACTIONS (2)
  - DEATH [None]
  - MYOCARDIAL ISCHAEMIA [None]
